FAERS Safety Report 17913369 (Version 1)
Quarter: 2020Q2

REPORT INFORMATION
  Report Type: Spontaneous
  Country: US (occurrence: US)
  Receive Date: 20200618
  Receipt Date: 20200618
  Transmission Date: 20200714
  Serious: No
  Sender: FDA-Public Use
  Company Number: US-THERAPEUTICSMD-2020TMD01677

PATIENT
  Sex: Female
  Weight: 63.49 kg

DRUGS (6)
  1. UNSPECIFIED THYROID PILL [Concomitant]
  2. UNSPECIFIED BLOOD PRESSURE PILL [Concomitant]
  3. IMVEXXY [Suspect]
     Active Substance: ESTRADIOL
     Dosage: 10 ?G, EVERY 48 HOURS, AT BEDTIME
     Route: 067
     Dates: start: 202003
  4. MYRBETRIQ [Concomitant]
     Active Substance: MIRABEGRON
  5. IMVEXXY [Suspect]
     Active Substance: ESTRADIOL
     Indication: VULVOVAGINAL BURNING SENSATION
     Dosage: 10 ?G, 1X/DAY AT BEDTIME
     Route: 067
     Dates: start: 202003, end: 202003
  6. UNSPECIFIED CHOLESTEROL PILL [Concomitant]

REACTIONS (5)
  - Product solubility abnormal [Not Recovered/Not Resolved]
  - Vaginal discharge [Not Recovered/Not Resolved]
  - Off label use [Not Recovered/Not Resolved]
  - Vulvovaginal pain [Not Recovered/Not Resolved]
  - Drug ineffective for unapproved indication [Not Recovered/Not Resolved]

NARRATIVE: CASE EVENT DATE: 2020
